FAERS Safety Report 7455211-8 (Version None)
Quarter: 2011Q2

REPORT INFORMATION
  Report Type: 
  Country: None (occurrence: None)
  Receive Date: 20110503
  Receipt Date: 20110419
  Transmission Date: 20111010
  Serious: Yes (Other)
  Sender: FDA-Public Use
  Company Number: CA-JNJFOC-20110409115

PATIENT
  Sex: Female
  Weight: 50 kg

DRUGS (6)
  1. REMICADE [Suspect]
     Indication: CROHN'S DISEASE
     Route: 042
  2. IMURAN [Concomitant]
     Route: 065
  3. PANTOTHENIC ACID [Concomitant]
     Route: 065
  4. VITAMIN B [Concomitant]
     Route: 065
  5. MESASAL [Concomitant]
     Route: 065
  6. SALMON OIL [Concomitant]
     Route: 065

REACTIONS (1)
  - FISTULA [None]
